FAERS Safety Report 21749223 (Version 3)
Quarter: 2024Q1

REPORT INFORMATION
  Report Type: Spontaneous
  Country: IE (occurrence: IE)
  Receive Date: 20221219
  Receipt Date: 20240219
  Transmission Date: 20240409
  Serious: Yes (Death, Other)
  Sender: FDA-Public Use
  Company Number: IE-ROCHE-3218608

PATIENT
  Age: 50 Year
  Sex: Female
  Weight: 96 kg

DRUGS (19)
  1. CARBOPLATIN [Suspect]
     Active Substance: CARBOPLATIN
     Indication: Follicular lymphoma
     Dosage: ROUTE: UNKNOWN
     Dates: start: 20201023, end: 20201113
  2. ETOPOSIDE [Suspect]
     Active Substance: ETOPOSIDE
     Indication: Follicular lymphoma
     Dosage: ROUTE: INTRAVENOUS
     Dates: start: 20201023, end: 20201113
  3. BENDAMUSTINE [Suspect]
     Active Substance: BENDAMUSTINE
     Indication: Follicular lymphoma
     Dates: start: 20210929, end: 20220123
  4. METHOTREXATE [Suspect]
     Active Substance: METHOTREXATE
     Indication: Follicular lymphoma
     Dosage: ROUTE: INTRAVENOUS
     Dates: start: 20190920, end: 20200202
  5. RITUXIMAB [Suspect]
     Active Substance: RITUXIMAB
     Indication: Follicular lymphoma
     Dosage: ROUTE: UNKNOWN
     Dates: start: 20201023, end: 20201113
  6. RITUXIMAB [Suspect]
     Active Substance: RITUXIMAB
     Dosage: ROUTE: UNKNOWN
     Dates: start: 20190920, end: 20200202
  7. RITUXIMAB [Suspect]
     Active Substance: RITUXIMAB
     Dosage: ROUTE: UNKNOWN
     Dates: start: 20210929, end: 20220123
  8. VINCRISTINE [Suspect]
     Active Substance: VINCRISTINE
     Indication: Follicular lymphoma
     Dosage: ROUTE: UNKNOWN
     Dates: start: 20190920, end: 20200202
  9. POLATUZUMAB VEDOTIN [Suspect]
     Active Substance: POLATUZUMAB VEDOTIN
     Indication: Follicular lymphoma
     Dosage: ROUTE: UNKNOWN
     Dates: start: 20210929, end: 20220123
  10. PREDNISONE [Suspect]
     Active Substance: PREDNISONE
     Indication: Follicular lymphoma
     Dosage: ROUTE: UNKNOWN
     Dates: start: 20190920, end: 20200202
  11. CYCLOPHOSPHAMIDE [Suspect]
     Active Substance: CYCLOPHOSPHAMIDE
     Indication: Follicular lymphoma
     Dosage: ROUTE: UNKNOWN
     Dates: start: 20190920, end: 20200202
  12. YESCARTA [Suspect]
     Active Substance: AXICABTAGENE CILOLEUCEL
     Indication: Follicular lymphoma
     Dosage: ROUTE: UNKNOWN
     Dates: start: 20210223
  13. IFOSFAMIDE [Suspect]
     Active Substance: IFOSFAMIDE
     Indication: Follicular lymphoma
     Dosage: ROUTE: UNKNOWN
     Dates: start: 20201023, end: 20201113
  14. DOXORUBICIN [Suspect]
     Active Substance: DOXORUBICIN
     Indication: Follicular lymphoma
     Dosage: ROUTE: UNKNOWN
     Dates: start: 20190920, end: 20200202
  15. SOTROVIMAB [Concomitant]
     Active Substance: SOTROVIMAB
     Indication: Product used for unknown indication
  16. CALVAPEN [Concomitant]
     Indication: Product used for unknown indication
  17. LANSOPRAZOLE [Concomitant]
     Active Substance: LANSOPRAZOLE
     Indication: Product used for unknown indication
  18. COTRIMOXAZOLE [Concomitant]
     Active Substance: SULFAMETHOXAZOLE\TRIMETHOPRIM
     Indication: Product used for unknown indication
  19. VALACYCLOVIR HYDROCHLORIDE [Concomitant]
     Active Substance: VALACYCLOVIR HYDROCHLORIDE
     Indication: Product used for unknown indication

REACTIONS (6)
  - Death [Fatal]
  - Disease progression [Fatal]
  - Neutropenia [Recovered/Resolved]
  - Nodule [Unknown]
  - Treatment failure [Unknown]
  - Drug ineffective [Unknown]

NARRATIVE: CASE EVENT DATE: 20220222
